FAERS Safety Report 14024963 (Version 1)
Quarter: 2017Q3

REPORT INFORMATION
  Report Type: Spontaneous
  Country: FR (occurrence: FR)
  Receive Date: 20170929
  Receipt Date: 20170929
  Transmission Date: 20171128
  Serious: Yes (Disabling)
  Sender: FDA-Public Use
  Company Number: FR-MERCK KGAA-2028250

PATIENT
  Age: 82 Year
  Sex: Female
  Weight: 80 kg

DRUGS (1)
  1. NOVOTHYROX [Suspect]
     Active Substance: LEVOTHYROXINE SODIUM
     Indication: THYROID DISORDER
     Route: 048
     Dates: start: 20170331, end: 20170901

REACTIONS (3)
  - Vertigo [Not Recovered/Not Resolved]
  - Walking aid user [Not Recovered/Not Resolved]
  - Balance disorder [Not Recovered/Not Resolved]

NARRATIVE: CASE EVENT DATE: 2017
